FAERS Safety Report 4925836-X (Version None)
Quarter: 2006Q1

REPORT INFORMATION
  Report Type: 
  Country: None (occurrence: None)
  Receive Date: 20060228
  Receipt Date: 20050329
  Transmission Date: 20060701
  Serious: No
  Sender: FDA-Public Use
  Company Number: US-GLAXOSMITHKLINE-A0551751A

PATIENT
  Age: 20 Year
  Sex: Female

DRUGS (3)
  1. LAMICTAL [Suspect]
     Indication: BIPOLAR II DISORDER
     Route: 048
     Dates: start: 20050217, end: 20050329
  2. ALBUTEROL [Concomitant]
     Indication: ASTHMA
  3. ZOLOFT [Concomitant]
     Dosage: 200MG PER DAY
     Dates: start: 20040201

REACTIONS (2)
  - RASH [None]
  - RASH GENERALISED [None]
